FAERS Safety Report 13901618 (Version 1)
Quarter: 2017Q3

REPORT INFORMATION
  Report Type: Spontaneous
  Country: AT (occurrence: AT)
  Receive Date: 20170824
  Receipt Date: 20170824
  Transmission Date: 20171127
  Serious: Yes (Other)
  Sender: FDA-Public Use
  Company Number: AT-IMPAX LABORATORIES, INC-2017-IPXL-02476

PATIENT
  Age: 44 Year
  Sex: Female

DRUGS (2)
  1. CORTISONE [Concomitant]
     Active Substance: CORTISONE\HYDROCORTISONE
     Indication: ANAPHYLACTIC REACTION
     Dosage: UNK
     Route: 042
  2. ADRENACLICK [Suspect]
     Active Substance: EPINEPHRINE
     Indication: ANAPHYLACTIC REACTION
     Dosage: UNK
     Route: 042

REACTIONS (1)
  - Stress cardiomyopathy [Recovered/Resolved]
